FAERS Safety Report 10466676 (Version 1)
Quarter: 2014Q3

REPORT INFORMATION
  Report Type: Spontaneous
  Country: SA (occurrence: None)
  Receive Date: 20140918
  Receipt Date: 20140918
  Transmission Date: 20150326
  Serious: Yes (Hospitalization)
  Sender: FDA-Public Use
  Company Number: VAL_03392_2014

PATIENT

DRUGS (5)
  1. CALCITROL (CALCITROL) [Suspect]
     Active Substance: CALCITRIOL
     Indication: PRODUCT USED FOR UNKNOWN INDICATION
     Dosage: 3X/WEEK,
     Route: 064
  2. EPOETIN ALFA [Concomitant]
     Active Substance: ERYTHROPOIETIN
  3. CYANOCOBALAMIN. [Concomitant]
     Active Substance: CYANOCOBALAMIN
  4. SACCHARATED IRON OXIDE [Concomitant]
     Active Substance: IRON SUCROSE
  5. NEPHRO-VITE [Concomitant]

REACTIONS (6)
  - Ultrasound scan abnormal [None]
  - Maternal drugs affecting foetus [None]
  - Low birth weight baby [None]
  - Premature baby [None]
  - Hyperbilirubinaemia neonatal [None]
  - Caesarean section [None]
